FAERS Safety Report 15823029 (Version 7)
Quarter: 2023Q2

REPORT INFORMATION
  Report Type: Report from Study
  Country: US (occurrence: US)
  Receive Date: 20190114
  Receipt Date: 20230607
  Transmission Date: 20230722
  Serious: Yes (Other)
  Sender: FDA-Public Use
  Company Number: US-PFIZER INC-2016405749

PATIENT
  Sex: Female
  Weight: 65 kg

DRUGS (12)
  1. LYRICA [Suspect]
     Active Substance: PREGABALIN
     Indication: Back pain
     Dosage: 225 MG, DAILY (1 PO 9AM, 2 PO 9 PM, 1 CAPSULE EVERY MORNING AND 2 CAPSULES EVERY NIGHT AT BEDTIME)
     Route: 048
     Dates: start: 20160823
  2. LYRICA [Suspect]
     Active Substance: PREGABALIN
     Indication: Neuropathy peripheral
     Dosage: 225 MG, DAILY (1 CAPSULES BY MOUTH EVERY MORNING AND 2 CAPSULES BY MOUTH EVERY NIGHT AT BEDTIME
     Route: 048
     Dates: start: 20190103
  3. LYRICA [Suspect]
     Active Substance: PREGABALIN
     Indication: Nervous system disorder
     Dosage: 225 MG, DAILY (1 CAPSULES BY MOUTH EVERY MORNING AND 2 CAPSULES BY MOUTH EVERY NIGHT AT BED TIME)
     Route: 048
  4. LEVOTHYROXINE [Concomitant]
     Active Substance: LEVOTHYROXINE
     Indication: Product used for unknown indication
     Dosage: 75 MG, DAILY REGIMEN DOSE UNIT: MILLIGRAM
     Route: 048
  5. MS CONTIN [Concomitant]
     Active Substance: MORPHINE SULFATE
     Indication: Product used for unknown indication
     Dosage: 30 MG, 2X/DAY (1 TAB BY MOUTH EVERY 12 HOURS) REGIMEN DOSE UNIT: MILLIGRAM
     Route: 048
  6. NORCO [Concomitant]
     Active Substance: ACETAMINOPHEN\HYDROCODONE BITARTRATE
     Indication: Pain
     Dosage: 1 DF, AS NEEDED (1 TAB EVERY 6 HOURS AS NEEDED)
     Route: 048
  7. NORVASC [Concomitant]
     Active Substance: AMLODIPINE BESYLATE
     Indication: Product used for unknown indication
     Dosage: 5 MG, DAILY REGIMEN DOSE UNIT: MILLIGRAM
     Route: 048
  8. NITROSTAT [Concomitant]
     Active Substance: NITROGLYCERIN
     Indication: Product used for unknown indication
     Dosage: 0.4 MG, AS NEEDED (APPLY/PLACE 1 TAB UNDER THE TONGUE EVERY 5 MINUTES AS NEEDED) REGIMEN DOSE UNIT:
     Route: 060
  9. ZOLOFT [Concomitant]
     Active Substance: SERTRALINE HYDROCHLORIDE
     Indication: Product used for unknown indication
     Dosage: 50 MG, DAILY REGIMEN DOSE UNIT: MILLIGRAM
     Route: 048
  10. TENORMIN [Concomitant]
     Active Substance: ATENOLOL
     Indication: Product used for unknown indication
     Dosage: 25 MG, DAILY REGIMEN DOSE UNIT: MILLIGRAM
     Route: 048
  11. ASPIRIN [Concomitant]
     Active Substance: ASPIRIN
     Indication: Product used for unknown indication
     Dosage: 81 MG, DAILY
     Route: 048
  12. PRILOSEC [Concomitant]
     Active Substance: OMEPRAZOLE MAGNESIUM
     Indication: Product used for unknown indication
     Dosage: 20 MG, DAILY REGIMEN DOSE UNIT: MILLIGRAM
     Route: 048

REACTIONS (3)
  - Deafness [Unknown]
  - Drug hypersensitivity [Unknown]
  - Off label use [Unknown]
